FAERS Safety Report 19888086 (Version 10)
Quarter: 2023Q1

REPORT INFORMATION
  Report Type: Spontaneous
  Country: PL (occurrence: PL)
  Receive Date: 20210927
  Receipt Date: 20230210
  Transmission Date: 20230418
  Serious: Yes (Death, Hospitalization, Other)
  Sender: FDA-Public Use
  Company Number: PL-002147023-NVSC2021PL105645

PATIENT
  Age: 75 Year
  Sex: Male

DRUGS (40)
  1. ESOMEPRAZOLE [Suspect]
     Active Substance: ESOMEPRAZOLE
     Indication: Product used for unknown indication
     Dosage: 40 MG, BID (TABLET)
     Route: 065
  2. ESOMEPRAZOLE [Suspect]
     Active Substance: ESOMEPRAZOLE
     Dosage: 40 MG, QD 1X1 TABLET IN THE MOR ON EMPTY STOMACH
     Route: 065
  3. ESOMEPRAZOLE [Suspect]
     Active Substance: ESOMEPRAZOLE
     Dosage: 80 MILLIGRAM, QD
     Route: 065
  4. ATORVASTATIN [Suspect]
     Active Substance: ATORVASTATIN
     Indication: Product used for unknown indication
     Dosage: 10 MG, QD IN THE EVENING
     Route: 065
  5. CLOPIDOGREL [Suspect]
     Active Substance: CLOPIDOGREL BISULFATE
     Indication: Product used for unknown indication
     Dosage: START AND STOP DATE 27-NOV-2019
     Route: 065
  6. CLOPIDOGREL [Suspect]
     Active Substance: CLOPIDOGREL BISULFATE
     Dosage: UNK UNK, QD
     Route: 065
  7. CLOPIDOGREL [Suspect]
     Active Substance: CLOPIDOGREL BISULFATE
     Dosage: UNK
     Route: 065
  8. CLOPIDOGREL [Suspect]
     Active Substance: CLOPIDOGREL BISULFATE
     Dosage: UNK, QD
     Route: 065
  9. OMEPRAZOLE [Suspect]
     Active Substance: OMEPRAZOLE
     Indication: Product used for unknown indication
     Dosage: 20 MG, QD (TABLET ON EMPTY STOMACH)
     Route: 065
  10. OMEPRAZOLE [Suspect]
     Active Substance: OMEPRAZOLE
     Dosage: 20 MG, QD (TABLET ON EMPTY STOMACH)
     Route: 065
  11. OMEPRAZOLE [Suspect]
     Active Substance: OMEPRAZOLE
     Indication: Product used for unknown indication
     Dosage: 10 MG, QD IN THE MORNING
     Route: 065
  12. OMEPRAZOLE [Suspect]
     Active Substance: OMEPRAZOLE
     Dosage: 20 MG, QD IN THE MORNING
     Route: 065
  13. AMOXICILLIN [Suspect]
     Active Substance: AMOXICILLIN
     Indication: Product used for unknown indication
     Dosage: 2 GRAM, QD (1 G, BID)
     Route: 065
  14. AMOXICILLIN [Suspect]
     Active Substance: AMOXICILLIN
     Dosage: 1 G BID
     Route: 065
  15. ASPIRIN [Suspect]
     Active Substance: ASPIRIN
     Indication: Myocardial infarction
     Dosage: 75 MILLIGRAM
     Route: 065
  16. ASPIRIN [Suspect]
     Active Substance: ASPIRIN
     Dosage: UNK
     Route: 065
  17. ASPIRIN [Suspect]
     Active Substance: ASPIRIN
     Dosage: 75 MILLIGRAM
     Route: 065
  18. LEVOFLOXACIN [Suspect]
     Active Substance: LEVOFLOXACIN
     Indication: Infective exacerbation of chronic obstructive airways disease
     Dosage: UNK
     Route: 042
  19. ENTRESTO [Suspect]
     Active Substance: SACUBITRIL\VALSARTAN
     Indication: Product used for unknown indication
     Dosage: BID, UNK 24/26 MG
     Route: 065
  20. ENTRESTO [Suspect]
     Active Substance: SACUBITRIL\VALSARTAN
     Dosage: 48 MILLIGRAM, QD, 24 MG 2X/DAY
     Route: 065
  21. ENTRESTO [Suspect]
     Active Substance: SACUBITRIL\VALSARTAN
     Dosage: 50 MG BID (24/26 MG)
     Route: 065
  22. ENTRESTO [Suspect]
     Active Substance: SACUBITRIL\VALSARTAN
     Dosage: 100 MILLIGRAM, QD
     Route: 065
  23. ENTRESTO [Suspect]
     Active Substance: SACUBITRIL\VALSARTAN
     Dosage: 24/26 MG, BID
     Route: 065
  24. BISOPROLOL [Suspect]
     Active Substance: BISOPROLOL
     Indication: Product used for unknown indication
     Dosage: 1.88 MG, QD, 1.875 MG, QD 1X1.5 TAB IN MORNING
     Route: 065
  25. BISOPROLOL [Suspect]
     Active Substance: BISOPROLOL
     Dosage: 1.25 MG, QD IN MORNING
     Route: 065
  26. BISOPROLOL [Suspect]
     Active Substance: BISOPROLOL
     Dosage: 1.5 DOSAGE FORM, QD
     Route: 065
  27. BISOPROLOL [Suspect]
     Active Substance: BISOPROLOL
     Dosage: 1.25 DOSAGE FORM, QD
     Route: 065
  28. BISOPROLOL [Suspect]
     Active Substance: BISOPROLOL
     Dosage: 1.875 MG, QD (1X1.5 TABLET IN THE MORNING)
     Route: 065
  29. ALLOPURINOL [Suspect]
     Active Substance: ALLOPURINOL
     Indication: Product used for unknown indication
     Dosage: 300 MG, QD
     Route: 065
  30. ALLOPURINOL [Suspect]
     Active Substance: ALLOPURINOL
     Dosage: 100 MG, QD IN THE MORNING
     Route: 065
  31. ALLOPURINOL [Suspect]
     Active Substance: ALLOPURINOL
     Dosage: 100 MG, QD IN THE MORNING
     Route: 065
  32. ALLOPURINOL [Suspect]
     Active Substance: ALLOPURINOL
     Dosage: 300 MILLIGRAM, QD
     Route: 065
  33. RAMIPRIL [Suspect]
     Active Substance: RAMIPRIL
     Indication: Product used for unknown indication
     Dosage: 5 MG, QD, 2.5 MG, BID (1 TABLET (2.5MG) IN MOR
     Route: 065
  34. RAMIPRIL [Suspect]
     Active Substance: RAMIPRIL
     Dosage: 1 TAB (2.5MG) IN MORNING AND 1/2 TABLET IN EVEN
     Route: 065
  35. RAMIPRIL [Suspect]
     Active Substance: RAMIPRIL
     Dosage: 1.5 DOSAGE FORM
     Route: 065
  36. RAMIPRIL [Suspect]
     Active Substance: RAMIPRIL
     Dosage: UNK
     Route: 065
  37. RAMIPRIL [Suspect]
     Active Substance: RAMIPRIL
     Dosage: UNK
     Route: 065
  38. RAMIPRIL [Suspect]
     Active Substance: RAMIPRIL
     Dosage: 2.5 MG, BID 1 TAB (2.5MG) IN MOR AND 1 TAB IN EVEN
     Route: 065
  39. TORSEMIDE [Suspect]
     Active Substance: TORSEMIDE
     Indication: Product used for unknown indication
     Dosage: 10 MG, QD IN THE MORNING
     Route: 065
  40. TORSEMIDE [Suspect]
     Active Substance: TORSEMIDE
     Dosage: 10 MG, QD IN THE MORNING
     Route: 065

REACTIONS (49)
  - COVID-19 pneumonia [Fatal]
  - Angina pectoris [Recovered/Resolved]
  - Infective exacerbation of chronic obstructive airways disease [Unknown]
  - Gastritis [Unknown]
  - Asthenia [Unknown]
  - Productive cough [Unknown]
  - Blood glucose increased [Unknown]
  - Exercise tolerance decreased [Unknown]
  - Skin ulcer [Recovered/Resolved]
  - Cardiac failure [Unknown]
  - Respiratory disorder [Unknown]
  - Ventricular arrhythmia [Unknown]
  - Pulmonary hypertension [Unknown]
  - Coronary artery disease [Unknown]
  - Eye injury [Unknown]
  - Cataract [Unknown]
  - Respiratory tract infection [Unknown]
  - Type 2 diabetes mellitus [Unknown]
  - Hiatus hernia [Unknown]
  - Ventricular hypokinesia [Unknown]
  - Gastritis erosive [Unknown]
  - Occult blood positive [Unknown]
  - Peripheral venous disease [Recovered/Resolved]
  - Degenerative mitral valve disease [Unknown]
  - Nicotine dependence [Unknown]
  - Cardiac aneurysm [Unknown]
  - Atrial fibrillation [Unknown]
  - Ventricular tachycardia [Unknown]
  - Diarrhoea [Unknown]
  - Inferior vena cava dilatation [Unknown]
  - Oedema peripheral [Recovered/Resolved]
  - Dyspnoea [Unknown]
  - Ventricular enlargement [Unknown]
  - Pulmonary vascular disorder [Unknown]
  - Duodenitis [Unknown]
  - Systolic dysfunction [Unknown]
  - Chronic kidney disease [Unknown]
  - Mitral valve incompetence [Unknown]
  - Normocytic anaemia [Unknown]
  - Chest discomfort [Unknown]
  - Heart rate irregular [Unknown]
  - Coronary artery stenosis [Unknown]
  - Helicobacter test positive [Unknown]
  - Melaena [Unknown]
  - Cardiac disorder [Unknown]
  - Blood pressure systolic decreased [Unknown]
  - Wrong technique in product usage process [Unknown]
  - Cardiac valve disease [Unknown]
  - Disease progression [Unknown]

NARRATIVE: CASE EVENT DATE: 20180601
